FAERS Safety Report 12616299 (Version 3)
Quarter: 2016Q4

REPORT INFORMATION
  Report Type: Report from Study
  Country: US (occurrence: US)
  Receive Date: 20160802
  Receipt Date: 20161012
  Transmission Date: 20170207
  Serious: Yes (Hospitalization)
  Sender: FDA-Public Use
  Company Number: US-EISAI MEDICAL RESEARCH-EC-2016-014537

PATIENT
  Age: 48 Year
  Sex: Female
  Weight: 66 kg

DRUGS (16)
  1. FIRST MOUTHWASH BLM [Concomitant]
     Active Substance: ALUMINUM HYDROXIDE\DIMETHICONE 410\DIPHENHYDRAMINE HYDROCHLORIDE\LIDOCAINE HYDROCHLORIDE\MAGNESIUM HYDROXIDE
  2. LEVETIRACETAM. [Concomitant]
     Active Substance: LEVETIRACETAM
  3. SULFAMETHOXAZOLE AND TRIMETHOPRIM DS [Concomitant]
     Active Substance: SULFAMETHOXAZOLE\TRIMETHOPRIM
  4. LENVATINIB [Suspect]
     Active Substance: LENVATINIB
     Route: 048
     Dates: start: 20160616
  5. UDDERLY SMOOTH [Concomitant]
  6. LEVOTHYROXINE. [Concomitant]
     Active Substance: LEVOTHYROXINE
  7. PEMBROLIZUMAB. [Suspect]
     Active Substance: PEMBROLIZUMAB
     Indication: MALIGNANT MELANOMA
     Route: 041
     Dates: start: 20151124
  8. AMLODIPINE [Concomitant]
     Active Substance: AMLODIPINE BESYLATE
  9. LENVATINIB [Suspect]
     Active Substance: LENVATINIB
     Indication: MALIGNANT MELANOMA
     Route: 048
     Dates: start: 20151124, end: 20160216
  10. TYLENOL [Concomitant]
     Active Substance: ACETAMINOPHEN
  11. IBUPROFEN. [Concomitant]
     Active Substance: IBUPROFEN
  12. LISINOPRIL. [Concomitant]
     Active Substance: LISINOPRIL
  13. LORAZEPAM. [Concomitant]
     Active Substance: LORAZEPAM
  14. LENVATINIB [Suspect]
     Active Substance: LENVATINIB
     Route: 048
     Dates: start: 2016, end: 20160614
  15. MAALOX/LIDOCAINE/DIPHENHYDRAMINE [Concomitant]
  16. ACETAMINOPHEN. [Concomitant]
     Active Substance: ACETAMINOPHEN

REACTIONS (3)
  - Cholecystitis [Recovered/Resolved]
  - Headache [Recovered/Resolved]
  - Seizure [Recovered/Resolved]

NARRATIVE: CASE EVENT DATE: 20160217
